FAERS Safety Report 10250824 (Version 1)
Quarter: 2014Q2

REPORT INFORMATION
  Report Type: Spontaneous
  Country: US (occurrence: US)
  Receive Date: 20140620
  Receipt Date: 20140620
  Transmission Date: 20141212
  Serious: Yes (Other)
  Sender: FDA-Public Use
  Company Number: US-BAYER-2014-088010

PATIENT
  Age: 61 Year
  Sex: Female

DRUGS (1)
  1. CIPRO [Suspect]
     Dosage: UNK

REACTIONS (3)
  - Loss of consciousness [None]
  - Drug hypersensitivity [None]
  - Rash [None]
